FAERS Safety Report 9364525 (Version 1)
Quarter: 2013Q2

REPORT INFORMATION
  Report Type: Spontaneous
  Country: ZA (occurrence: ZA)
  Receive Date: 20130624
  Receipt Date: 20130624
  Transmission Date: 20140414
  Serious: Yes (Hospitalization)
  Sender: FDA-Public Use
  Company Number: ZA-PFIZER INC-2013185387

PATIENT
  Age: 82 Year
  Sex: Male

DRUGS (11)
  1. LYRICA [Suspect]
     Dosage: 150 MG, 2X/DAY
     Route: 048
  2. EBIXA [Concomitant]
     Dosage: 10 MG, TWICE DAILY
     Route: 048
  3. HEXARONE [Concomitant]
     Dosage: 200 MG, IN THE MORNING
  4. PURICOS [Concomitant]
     Dosage: 300 MG, IN THE MORNING
  5. ASPAVOR [Concomitant]
     Dosage: 10 MG, IN THE EVENING
     Route: 048
  6. ELTROXIN [Concomitant]
     Dosage: 0.1 MG, 1X/DAY (3 TABLETS) IN THE MORNING
     Route: 048
  7. DOPAQUEL [Concomitant]
     Dosage: 25 MG, IN THE EVENING
     Route: 048
  8. WARFARIN [Concomitant]
     Dosage: 5 MG, 1X/DAY, IN THE EVENING
     Route: 048
  9. PURESIS [Concomitant]
     Dosage: 40 MG, 1X/DAY, IN THE MORNING
     Route: 048
  10. PRITOR [Concomitant]
     Dosage: 80 MG, 1X/DAY, IN THE MORNING
     Route: 048
  11. TRAMACET [Concomitant]
     Dosage: 2 TABLETS, TWICE DAILY
     Route: 048

REACTIONS (9)
  - Incorrect dose administered [Recovered/Resolved]
  - Eye disorder [Recovered/Resolved]
  - Unresponsive to stimuli [Recovered/Resolved]
  - Respiratory arrest [Recovered/Resolved]
  - Pneumonia [Recovered/Resolved]
  - Aphasia [Recovered/Resolved]
  - Eye disorder [Recovered/Resolved]
  - Somnolence [Unknown]
  - Disorientation [Unknown]
